FAERS Safety Report 8432011-3 (Version None)
Quarter: 2012Q2

REPORT INFORMATION
  Report Type: 
  Country: None (occurrence: None)
  Receive Date: 20120613
  Receipt Date: 20111128
  Transmission Date: 20120825
  Serious: No
  Sender: FDA-Public Use
  Company Number: US-ASTRAZENECA-2011SE72317

PATIENT
  Age: 63 Year
  Sex: Female

DRUGS (4)
  1. CARAFATE [Concomitant]
     Indication: GASTROOESOPHAGEAL REFLUX DISEASE
  2. RHINOCORT [Suspect]
     Indication: RHINITIS
     Dosage: TWO PUFFS EACH NOSTRIL A DAY
     Route: 045
  3. LIPITOR [Concomitant]
     Indication: BLOOD CHOLESTEROL ABNORMAL
  4. LISINOPRIL [Concomitant]
     Indication: BLOOD PRESSURE ABNORMAL

REACTIONS (2)
  - FEELING JITTERY [None]
  - NASAL DISCOMFORT [None]
